FAERS Safety Report 25306085 (Version 2)
Quarter: 2025Q2

REPORT INFORMATION
  Report Type: Spontaneous
  Country: JP (occurrence: JP)
  Receive Date: 20250513
  Receipt Date: 20250619
  Transmission Date: 20250717
  Serious: Yes (Death)
  Sender: ROCHE
  Company Number: JP-CHUGAI-2025014873

PATIENT
  Age: 75 Year
  Sex: Male

DRUGS (1)
  1. ROZLYTREK [Suspect]
     Active Substance: ENTRECTINIB
     Indication: Gastric cancer stage IV
     Route: 048
     Dates: start: 20240717, end: 20240731

REACTIONS (1)
  - Disease progression [Fatal]
